FAERS Safety Report 6183991-0 (Version None)
Quarter: 2009Q2

REPORT INFORMATION
  Report Type: 
  Country: None (occurrence: None)
  Receive Date: 20090508
  Receipt Date: 20090428
  Transmission Date: 20091009
  Serious: No
  Sender: FDA-Public Use
  Company Number: NL-JNJFOC-20090203048

PATIENT
  Sex: Male
  Weight: 63.3 kg

DRUGS (13)
  1. INFLIXIMAB [Suspect]
     Route: 042
  2. INFLIXIMAB [Suspect]
     Route: 042
  3. INFLIXIMAB [Suspect]
     Route: 042
  4. INFLIXIMAB [Suspect]
     Route: 042
  5. INFLIXIMAB [Suspect]
     Dosage: WEEK 14
     Route: 042
  6. INFLIXIMAB [Suspect]
     Dosage: WEEK 6
     Route: 042
  7. INFLIXIMAB [Suspect]
     Dosage: WEEK 2
     Route: 042
  8. INFLIXIMAB [Suspect]
     Indication: COLITIS ULCERATIVE
     Dosage: WEEK 0
     Route: 042
  9. SALOFALK [Concomitant]
     Indication: COLITIS ULCERATIVE
     Route: 048
  10. AZATHIOPRINE [Concomitant]
     Indication: COLITIS ULCERATIVE
     Route: 048
  11. DOMPERIDON [Concomitant]
     Indication: COLITIS ULCERATIVE
     Route: 048
  12. PREDNISOLONE [Concomitant]
     Indication: COLITIS ULCERATIVE
     Route: 048
  13. CALCIUM/VITAMIN D [Concomitant]
     Indication: COLITIS ULCERATIVE
     Route: 048

REACTIONS (1)
  - COLITIS ULCERATIVE [None]
